FAERS Safety Report 21404287 (Version 2)
Quarter: 2022Q4

REPORT INFORMATION
  Report Type: Spontaneous
  Country: US (occurrence: US)
  Receive Date: 20221003
  Receipt Date: 20221031
  Transmission Date: 20230113
  Serious: No
  Sender: FDA-Public Use
  Company Number: US-SA-SAC20220927000718

PATIENT
  Sex: Male

DRUGS (2)
  1. DUPIXENT [Suspect]
     Active Substance: DUPILUMAB
     Indication: Nasal polyps
     Dosage: 300 MG, QOW
     Route: 058
     Dates: start: 20220324
  2. SYMBICORT [Suspect]
     Active Substance: BUDESONIDE\FORMOTEROL FUMARATE DIHYDRATE
     Dosage: UNK

REACTIONS (7)
  - Lip pain [Recovering/Resolving]
  - Lip erythema [Recovering/Resolving]
  - Lip dry [Recovering/Resolving]
  - Lip swelling [Recovering/Resolving]
  - Fatigue [Recovered/Resolved]
  - Symptom recurrence [Unknown]
  - Oral herpes [Recovered/Resolved]

NARRATIVE: CASE EVENT DATE: 20220101
